FAERS Safety Report 23658405 (Version 1)
Quarter: 2024Q1

REPORT INFORMATION
  Report Type: Spontaneous
  Country: US (occurrence: US)
  Receive Date: 20240321
  Receipt Date: 20240321
  Transmission Date: 20240409
  Serious: Yes (Other)
  Sender: FDA-Public Use
  Company Number: US-INTRA-CELLULAR THERAPIES, INC.-2024ICT00406

PATIENT
  Age: 32 Year
  Sex: Female

DRUGS (4)
  1. CAPLYTA [Suspect]
     Active Substance: LUMATEPERONE
     Indication: Schizophrenia
     Dosage: 10.5 UNK
     Dates: end: 2024
  2. CAPLYTA [Suspect]
     Active Substance: LUMATEPERONE
     Dosage: 21 MG
     Dates: start: 2024, end: 202402
  3. BUSPAR [Suspect]
     Active Substance: BUSPIRONE HYDROCHLORIDE
     Dosage: UNK
  4. ARMODAFINIL [Suspect]
     Active Substance: ARMODAFINIL
     Dosage: UNK

REACTIONS (6)
  - Neuroleptic malignant syndrome [Recovered/Resolved]
  - Feeling hot [Recovered/Resolved]
  - Vertigo [Recovered/Resolved]
  - Heart rate increased [Recovered/Resolved]
  - Dysphagia [Recovered/Resolved]
  - Tremor [Recovered/Resolved]

NARRATIVE: CASE EVENT DATE: 20240201
